FAERS Safety Report 15758120 (Version 2)
Quarter: 2019Q1

REPORT INFORMATION
  Report Type: Report from Study
  Country: BE (occurrence: BE)
  Receive Date: 20181225
  Receipt Date: 20190123
  Transmission Date: 20190417
  Serious: Yes (Hospitalization, Disabling, Other)
  Sender: FDA-Public Use
  Company Number: BE-TAKEDA-2018TUS036329

PATIENT
  Sex: Female

DRUGS (3)
  1. MEDROL [Concomitant]
     Active Substance: METHYLPREDNISOLONE
     Dosage: UNK
     Dates: end: 20180719
  2. VEDOLIZUMAB [Suspect]
     Active Substance: VEDOLIZUMAB
     Indication: COLITIS ULCERATIVE
     Dosage: UNK
     Route: 042
     Dates: start: 20170830, end: 20180717
  3. PANTOMED                           /00178901/ [Concomitant]
     Active Substance: DEXPANTHENOL
     Dosage: UNK

REACTIONS (1)
  - Colitis ulcerative [Recovered/Resolved with Sequelae]

NARRATIVE: CASE EVENT DATE: 20180802
